FAERS Safety Report 7745753-X (Version None)
Quarter: 2011Q3

REPORT INFORMATION
  Report Type: 
  Country: None (occurrence: None)
  Receive Date: 20110830
  Receipt Date: 20110822
  Transmission Date: 20111222
  Serious: Yes (Hospitalization)
  Sender: FDA-Public Use
  Company Number: 2011SP039985

PATIENT
  Age: 28 Year
  Sex: Female
  Weight: 83 kg

DRUGS (2)
  1. CERAZETTE (DESOGESTREL /00754001/) [Suspect]
     Indication: CONTRACEPTION
     Dosage: PO
     Route: 048
     Dates: start: 20050101
  2. CLONAZEPAM [Concomitant]

REACTIONS (5)
  - MALAISE [None]
  - TOXICITY TO VARIOUS AGENTS [None]
  - MENSTRUATION IRREGULAR [None]
  - STRESS [None]
  - DRUG DOSE OMISSION [None]
